FAERS Safety Report 4518738-4 (Version None)
Quarter: 2004Q4

REPORT INFORMATION
  Report Type: 
  Country: None (occurrence: None)
  Receive Date: 20041201
  Receipt Date: 20041116
  Transmission Date: 20050328
  Serious: Yes (Death, Hospitalization)
  Sender: FDA-Public Use
  Company Number: US-2004-034444

PATIENT
  Age: 80 Year
  Sex: Male
  Weight: 71.7 kg

DRUGS (16)
  1. CAMPATH [Suspect]
     Indication: NON-HODGKIN'S LYMPHOMA
     Dosage: SEE IMAGE
     Route: 058
     Dates: start: 20041005, end: 20041007
  2. CAMPATH [Suspect]
     Indication: NON-HODGKIN'S LYMPHOMA
     Dosage: SEE IMAGE
     Route: 058
     Dates: start: 20041011, end: 20041105
  3. RITUXAN [Suspect]
     Dates: start: 20040925, end: 20040925
  4. RITUXAN [Suspect]
     Dates: start: 20041004, end: 20041004
  5. RITUXAN [Suspect]
     Dates: start: 20041011, end: 20041011
  6. RITUXAN [Suspect]
     Dates: start: 20041101, end: 20041101
  7. DIFLUCAN [Concomitant]
  8. BACTRIM [Concomitant]
  9. FAMVIR /NET/ PENCICLOVIR) [Concomitant]
  10. PRIMAXIN [Concomitant]
  11. SYNTHROID [Concomitant]
  12. SOLU-MEDROL [Concomitant]
  13. PROTONIX ^PHARMACIA^ (PANTOPRAZOLE) [Concomitant]
  14. ATIVAN [Concomitant]
  15. FOLIC ACID [Concomitant]
  16. PRIMAXIN [Concomitant]

REACTIONS (3)
  - PLEURAL EFFUSION [None]
  - RESPIRATORY FAILURE [None]
  - STAPHYLOCOCCAL INFECTION [None]
